FAERS Safety Report 7042126-2 (Version None)
Quarter: 2010Q4

REPORT INFORMATION
  Report Type: 
  Country: None (occurrence: None)
  Receive Date: 20101007
  Receipt Date: 20100923
  Transmission Date: 20110411
  Serious: Yes (Life-Threatening, Hospitalization)
  Sender: FDA-Public Use
  Company Number: AUR-APL-2010-01799

PATIENT
  Age: 75 Year
  Sex: Male

DRUGS (5)
  1. METOPROLOL [Suspect]
     Indication: CARDIAC FAILURE
     Dosage: 100MG, DAILY
  2. RAMIPRIL [Suspect]
     Indication: CARDIAC FAILURE
     Dosage: 10MG, DAILY
  3. SPIRONOLACTONE [Suspect]
     Indication: CARDIAC FAILURE
     Dosage: 25MG - DAILY
  4. DIGITOXIN [Concomitant]
  5. BUMETANIDE [Concomitant]

REACTIONS (19)
  - ALTERED STATE OF CONSCIOUSNESS [None]
  - BRADYCARDIA [None]
  - CARDIAC OUTPUT DECREASED [None]
  - CARDIOACTIVE DRUG LEVEL INCREASED [None]
  - CARDIOGENIC SHOCK [None]
  - DRUG INTERACTION [None]
  - GENERAL PHYSICAL HEALTH DETERIORATION [None]
  - HAEMODIALYSIS [None]
  - HYPERKALAEMIA [None]
  - HYPOPHAGIA [None]
  - HYPOVOLAEMIA [None]
  - HYPOXIA [None]
  - LEFT VENTRICULAR FAILURE [None]
  - MALAISE [None]
  - METABOLIC ACIDOSIS [None]
  - MITRAL VALVE INCOMPETENCE [None]
  - NO THERAPEUTIC RESPONSE [None]
  - PERIPHERAL COLDNESS [None]
  - RENAL FAILURE ACUTE [None]
